FAERS Safety Report 7292295-4 (Version None)
Quarter: 2011Q1

REPORT INFORMATION
  Report Type: 
  Country: None (occurrence: None)
  Receive Date: 20110202
  Receipt Date: 20110119
  Transmission Date: 20110831
  Serious: Yes (Hospitalization)
  Sender: FDA-Public Use
  Company Number: 2011SP003684

PATIENT
  Sex: Female
  Weight: 1.8144 kg

DRUGS (1)
  1. IMPLANON [Suspect]
     Indication: DRUG EXPOSURE DURING PREGNANCY
     Dosage: ; TRPL
     Route: 064

REACTIONS (2)
  - PREMATURE BABY [None]
  - MATERNAL DRUGS AFFECTING FOETUS [None]
